FAERS Safety Report 7921400-9 (Version None)
Quarter: 2011Q4

REPORT INFORMATION
  Report Type: 
  Country: None (occurrence: None)
  Receive Date: 20111117
  Receipt Date: 20111110
  Transmission Date: 20120403
  Serious: Yes (Hospitalization, Other)
  Sender: FDA-Public Use
  Company Number: US-BAYER-2011-048162

PATIENT
  Age: 27 Year
  Sex: Female
  Weight: 83.9 kg

DRUGS (7)
  1. IBUPROFEN [Concomitant]
  2. ANTIBIOTICS [Concomitant]
  3. YAZ [Suspect]
     Indication: PREMENSTRUAL SYNDROME
  4. TRI-SPRINTEC [Concomitant]
     Dosage: UNK
     Dates: start: 20090701
  5. YAZ [Suspect]
     Indication: CONTRACEPTION
     Dosage: UNK
     Dates: start: 20090101, end: 20090101
  6. GINKO BILOBA [Concomitant]
     Dosage: UNK UNK, BID
  7. YAZ [Suspect]

REACTIONS (7)
  - CHOLELITHIASIS [None]
  - MENTAL DISORDER [None]
  - CHOLECYSTITIS CHRONIC [None]
  - GALLBLADDER DISORDER [None]
  - PAIN [None]
  - ABDOMINAL DISCOMFORT [None]
  - WEIGHT DECREASED [None]
